FAERS Safety Report 20216865 (Version 1)
Quarter: 2021Q4

REPORT INFORMATION
  Report Type: Spontaneous
  Country: US (occurrence: None)
  Receive Date: 20211222
  Receipt Date: 20211222
  Transmission Date: 20220303
  Serious: No
  Sender: FDA-Public Use
  Company Number: None

PATIENT
  Age: 71 Year
  Sex: Male

DRUGS (1)
  1. CLOPIDOGREL BISULFATE [Suspect]
     Active Substance: CLOPIDOGREL BISULFATE
     Indication: Coronary artery disease
     Dates: start: 20180305, end: 20210913

REACTIONS (2)
  - Gastrointestinal polyp [None]
  - Gastric haemorrhage [None]

NARRATIVE: CASE EVENT DATE: 20210902
